FAERS Safety Report 4879544-4 (Version None)
Quarter: 2006Q1

REPORT INFORMATION
  Report Type: 
  Country: None (occurrence: None)
  Receive Date: 20060111
  Receipt Date: 20051229
  Transmission Date: 20060701
  Serious: Yes (Hospitalization)
  Sender: FDA-Public Use
  Company Number: MEDI-0003956

PATIENT
  Age: 48 Year
  Sex: Male
  Weight: 90.8555 kg

DRUGS (10)
  1. ETHYOL [Suspect]
     Indication: CHEMOTHERAPY
     Dosage: 500 MG, 5 IN 1 WK, SUBCUTANEOUS
     Route: 058
     Dates: start: 20051117, end: 20051229
  2. ETHYOL [Suspect]
     Indication: RADIOTHERAPY
     Dosage: 500 MG, 5 IN 1 WK, SUBCUTANEOUS
     Route: 058
     Dates: start: 20051117, end: 20051229
  3. CISPLATIN [Concomitant]
  4. RADIATION THERAPY [Concomitant]
  5. DURAGESIC-100 [Concomitant]
  6. PERI-COLACE [Concomitant]
  7. BENADRYL [Concomitant]
  8. MAALOX (MAGNESIUM HYDROXIDE, ALUMINUM HYDROXIDE GEL) [Concomitant]
  9. LIDOCAINE [Concomitant]
  10. NYSTAT (NYSTATIN) [Concomitant]

REACTIONS (12)
  - ASTHENIA [None]
  - DEHYDRATION [None]
  - DRUG ADMINISTRATION ERROR [None]
  - FATIGUE [None]
  - INFECTION [None]
  - MALAISE [None]
  - NEUTROPENIA [None]
  - OEDEMA PERIPHERAL [None]
  - PHARYNGOLARYNGEAL PAIN [None]
  - PRURITUS [None]
  - PYREXIA [None]
  - RASH MACULAR [None]
